FAERS Safety Report 16802049 (Version 1)
Quarter: 2019Q3

REPORT INFORMATION
  Report Type: Spontaneous
  Country: SE (occurrence: SE)
  Receive Date: 20190912
  Receipt Date: 20190912
  Transmission Date: 20191005
  Serious: Yes (Hospitalization, Other)
  Sender: FDA-Public Use
  Company Number: SE-SHIRE-SE201929492

PATIENT

DRUGS (3)
  1. FLUOXETINE [Suspect]
     Active Substance: FLUOXETINE HYDROCHLORIDE
     Indication: PRODUCT USED FOR UNKNOWN INDICATION
     Dosage: 6 ST A 20 MG, TOTALT 120 MG
     Dates: start: 20190427, end: 20190427
  2. ELVANSE [Suspect]
     Active Substance: LISDEXAMFETAMINE DIMESYLATE
     Indication: PRODUCT USED FOR UNKNOWN INDICATION
     Dosage: 80-100 MG TOTALT, MOTSTRIDIGA UPPGIFTER I RAPPORTEN.
     Route: 048
     Dates: start: 20190427, end: 20190427
  3. LERGIGAN COMP [Suspect]
     Active Substance: CAFFEINE\EPHEDRINE\PROMETHAZINE
     Indication: PRODUCT USED FOR UNKNOWN INDICATION
     Dosage: 5 ST , TOTALT 125 MG
     Route: 048
     Dates: start: 20190427, end: 20190427

REACTIONS (3)
  - Intentional overdose [Unknown]
  - Suicide attempt [Unknown]
  - Fatigue [Unknown]

NARRATIVE: CASE EVENT DATE: 20190427
